FAERS Safety Report 9335218 (Version 2)
Quarter: 2013Q2

REPORT INFORMATION
  Report Type: Spontaneous
  Country: GR (occurrence: GR)
  Receive Date: 20130606
  Receipt Date: 20130620
  Transmission Date: 20140414
  Serious: Yes (Death, Hospitalization)
  Sender: FDA-Public Use
  Company Number: GR-GILEAD-2013-0076447

PATIENT
  Age: 70 Year
  Sex: Male

DRUGS (3)
  1. VIREAD [Suspect]
     Indication: HEPATITIS B
     Dosage: 245 MG, UNK
     Route: 048
     Dates: start: 20130507, end: 20130513
  2. ENTECAVIR [Suspect]
     Indication: HEPATITIS B
     Dosage: 0.5 MG, QOD
     Route: 048
     Dates: start: 20130515, end: 20130519
  3. TELBIVUDINE [Suspect]
     Indication: HEPATITIS B
     Dosage: UNK UNK, CYCLICAL
     Route: 048
     Dates: start: 20130521, end: 20130530

REACTIONS (1)
  - Renal impairment [Fatal]
